FAERS Safety Report 8520948-6 (Version None)
Quarter: 2012Q3

REPORT INFORMATION
  Report Type: 
  Country: None (occurrence: None)
  Receive Date: 20120706
  Receipt Date: 20120621
  Transmission Date: 20120928
  Serious: Yes (Other)
  Sender: FDA-Public Use
  Company Number: CIP09001037

PATIENT
  Age: 38 Year
  Sex: Female

DRUGS (4)
  1. ALFAROL (ALFACALCIDOL) [Suspect]
     Indication: OSTEITIS DEFORMANS
     Dosage: ORAL
     Route: 048
     Dates: start: 20090309, end: 20091101
  2. LOXONIN (LOXOPROFEN SODIUM) [Suspect]
     Indication: PAIN
     Dosage: 1 DOSE FORM
     Dates: start: 20091201
  3. ASPARA-CA (ASPARTATE CALCIUM) [Suspect]
     Indication: OSTEITIS DEFORMANS
     Dosage: ORAL
     Route: 048
     Dates: start: 20090126, end: 20091101
  4. ACTONEL [Suspect]
     Indication: OSTEITIS DEFORMANS
     Dosage: 17.5 MG ONCE DAILY, ORAL
     Route: 048
     Dates: start: 20090406, end: 20090907

REACTIONS (6)
  - HYPOCALCAEMIA [None]
  - BLOOD PHOSPHORUS DECREASED [None]
  - TETANY [None]
  - NEUROPATHY PERIPHERAL [None]
  - HYPOAESTHESIA [None]
  - BLOOD ALKALINE PHOSPHATASE INCREASED [None]
